FAERS Safety Report 20830566 (Version 3)
Quarter: 2022Q4

REPORT INFORMATION
  Report Type: Report from Study
  Country: CA (occurrence: CA)
  Receive Date: 20220514
  Receipt Date: 20221125
  Transmission Date: 20230112
  Serious: Yes (Hospitalization, Other)
  Sender: FDA-Public Use
  Company Number: CA-TAKEDA-2021TUS072586

PATIENT
  Age: 3 Year
  Sex: Female
  Weight: 17 kg

DRUGS (28)
  1. TEDUGLUTIDE [Suspect]
     Active Substance: TEDUGLUTIDE
     Indication: Short-bowel syndrome
     Dosage: 0.8 MILLIGRAM, QD
     Route: 065
     Dates: start: 20211110
  2. TEDUGLUTIDE [Suspect]
     Active Substance: TEDUGLUTIDE
     Indication: Short-bowel syndrome
     Dosage: 0.8 MILLIGRAM, QD
     Route: 065
     Dates: start: 20211110
  3. TEDUGLUTIDE [Suspect]
     Active Substance: TEDUGLUTIDE
     Indication: Short-bowel syndrome
     Dosage: 0.8 MILLIGRAM, QD
     Route: 065
     Dates: start: 20211110
  4. TEDUGLUTIDE [Suspect]
     Active Substance: TEDUGLUTIDE
     Indication: Short-bowel syndrome
     Dosage: 0.8 MILLIGRAM, QD
     Route: 065
     Dates: start: 20211110
  5. TEDUGLUTIDE [Suspect]
     Active Substance: TEDUGLUTIDE
     Dosage: 0.8 MILLIGRAM, QD
     Route: 065
     Dates: start: 20211110
  6. TEDUGLUTIDE [Suspect]
     Active Substance: TEDUGLUTIDE
     Dosage: 0.8 MILLIGRAM, QD
     Route: 065
     Dates: start: 20211110
  7. TEDUGLUTIDE [Suspect]
     Active Substance: TEDUGLUTIDE
     Dosage: 0.8 MILLIGRAM, QD
     Route: 065
     Dates: start: 20211110
  8. TEDUGLUTIDE [Suspect]
     Active Substance: TEDUGLUTIDE
     Dosage: 0.8 MILLIGRAM, QD
     Route: 065
     Dates: start: 20211110
  9. TEDUGLUTIDE [Suspect]
     Active Substance: TEDUGLUTIDE
     Dosage: 0.8 MILLIGRAM, QD
     Route: 065
     Dates: start: 20211110
  10. TEDUGLUTIDE [Suspect]
     Active Substance: TEDUGLUTIDE
     Dosage: 0.8 MILLIGRAM, QD
     Route: 065
     Dates: start: 20211110
  11. TEDUGLUTIDE [Suspect]
     Active Substance: TEDUGLUTIDE
     Dosage: 0.8 MILLIGRAM, QD
     Route: 065
     Dates: start: 20211110
  12. TEDUGLUTIDE [Suspect]
     Active Substance: TEDUGLUTIDE
     Dosage: 0.8 MILLIGRAM, QD
     Route: 065
     Dates: start: 20211110
  13. TEDUGLUTIDE [Suspect]
     Active Substance: TEDUGLUTIDE
     Dosage: 0.8 MILLIGRAM, QD
     Route: 058
     Dates: start: 20211110
  14. TEDUGLUTIDE [Suspect]
     Active Substance: TEDUGLUTIDE
     Dosage: 0.8 MILLIGRAM, QD
     Route: 058
     Dates: start: 20211110
  15. TEDUGLUTIDE [Suspect]
     Active Substance: TEDUGLUTIDE
     Dosage: 0.8 MILLIGRAM, QD
     Route: 058
     Dates: start: 20211110
  16. TEDUGLUTIDE [Suspect]
     Active Substance: TEDUGLUTIDE
     Dosage: 0.8 MILLIGRAM, QD
     Route: 058
     Dates: start: 20211110
  17. TEDUGLUTIDE [Suspect]
     Active Substance: TEDUGLUTIDE
     Dosage: 0.91 MILLIGRAM, QD
     Route: 058
     Dates: start: 20211110
  18. TEDUGLUTIDE [Suspect]
     Active Substance: TEDUGLUTIDE
     Dosage: 0.91 MILLIGRAM, QD
     Route: 058
     Dates: start: 20211110
  19. TEDUGLUTIDE [Suspect]
     Active Substance: TEDUGLUTIDE
     Dosage: 0.91 MILLIGRAM, QD
     Route: 058
     Dates: start: 20211110
  20. TEDUGLUTIDE [Suspect]
     Active Substance: TEDUGLUTIDE
     Dosage: 0.91 MILLIGRAM, QD
     Route: 058
     Dates: start: 20211110
  21. VITAMIN K [Concomitant]
     Active Substance: PHYTONADIONE
     Indication: Product used for unknown indication
     Dosage: 1 MILLIGRAM, QD
     Route: 065
  22. VITAMIN B12 [Concomitant]
     Active Substance: CYANOCOBALAMIN
     Indication: Product used for unknown indication
     Dosage: 1 DOSAGE FORM, QD
     Route: 065
  23. VITAMIN D [Concomitant]
     Active Substance: VITAMIN D NOS
     Indication: Product used for unknown indication
     Dosage: 7000 INTERNATIONAL UNIT, QD
     Route: 065
  24. LOPERAMIDE [Concomitant]
     Active Substance: LOPERAMIDE
     Indication: Gastrointestinal motility disorder
     Dosage: 2 MILLIGRAM, TID
     Route: 065
  25. LOPERAMIDE [Concomitant]
     Active Substance: LOPERAMIDE
     Dosage: 4 MILLIGRAM, TID
     Route: 048
     Dates: start: 201902
  26. TYLENOL [Concomitant]
     Active Substance: ACETAMINOPHEN
     Indication: Abdominal discomfort
     Dosage: 5 MILLILITER
     Route: 065
  27. Fenadin [Concomitant]
     Indication: Product used for unknown indication
     Dosage: 3 MILLILITER, QD
     Route: 065
  28. Intravenous potassium chloride [Concomitant]
     Indication: Product used for unknown indication
     Route: 065

REACTIONS (35)
  - Intestinal obstruction [Recovered/Resolved]
  - Stoma prolapse [Not Recovered/Not Resolved]
  - Irritability [Recovered/Resolved]
  - Flatulence [Recovered/Resolved]
  - Thirst [Recovered/Resolved]
  - Feeling drunk [Recovered/Resolved]
  - Swelling face [Recovered/Resolved]
  - Sleep disorder [Unknown]
  - Diarrhoea [Recovering/Resolving]
  - Abdominal discomfort [Unknown]
  - Fatigue [Not Recovered/Not Resolved]
  - Decreased appetite [Not Recovered/Not Resolved]
  - Cough [Not Recovered/Not Resolved]
  - Rhinorrhoea [Recovering/Resolving]
  - Faecal volume decreased [Unknown]
  - Faeces discoloured [Recovered/Resolved]
  - Abdominal pain [Recovered/Resolved]
  - Asthenia [Not Recovered/Not Resolved]
  - Stoma site discharge [Unknown]
  - Pollakiuria [Unknown]
  - Nasopharyngitis [Recovered/Resolved]
  - Gastrointestinal stoma complication [Recovering/Resolving]
  - Urine output increased [Recovering/Resolving]
  - Urine output decreased [Unknown]
  - Gastrointestinal stoma output increased [Unknown]
  - COVID-19 [Unknown]
  - Weight increased [Recovered/Resolved]
  - Urine abnormality [Unknown]
  - Vomiting [Recovered/Resolved]
  - Colitis [Unknown]
  - Infection [Unknown]
  - Stoma complication [Unknown]
  - Pyrexia [Not Recovered/Not Resolved]
  - Chills [Not Recovered/Not Resolved]
  - Pain [Not Recovered/Not Resolved]

NARRATIVE: CASE EVENT DATE: 20211101
